FAERS Safety Report 10562075 (Version 2)
Quarter: 2014Q4

REPORT INFORMATION
  Report Type: Spontaneous
  Country: JP (occurrence: JP)
  Receive Date: 20141104
  Receipt Date: 20141211
  Transmission Date: 20150529
  Serious: Yes (Hospitalization, Disabling)
  Sender: FDA-Public Use
  Company Number: JP-GE HEALTHCARE MEDICAL DIAGNOSTICS-OMPQ-PR-1410S-1382

PATIENT
  Age: 66 Year
  Sex: Female
  Weight: 48 kg

DRUGS (9)
  1. DIOVAN [Concomitant]
     Active Substance: VALSARTAN
     Dates: start: 2011
  2. OMNIPAQUE [Suspect]
     Active Substance: IOHEXOL
     Indication: INTRACRANIAL ANEURYSM
  3. PENTAGIN INJECTION [Concomitant]
     Dates: start: 20130313, end: 20130313
  4. HORIZON [Concomitant]
     Active Substance: DIAZEPAM
     Dates: start: 20130313, end: 20130313
  5. BAYASPIRIN [Concomitant]
     Active Substance: ASPIRIN
     Dates: start: 20130226
  6. PLAVIX [Concomitant]
     Active Substance: CLOPIDOGREL BISULFATE
     Dates: start: 20130226
  7. OMNIPAQUE [Suspect]
     Active Substance: IOHEXOL
     Indication: ANEURYSM REPAIR
     Route: 013
     Dates: start: 20130313, end: 20130313
  8. OMNIPAQUE [Suspect]
     Active Substance: IOHEXOL
     Indication: THERAPEUTIC PROCEDURE
     Route: 013
     Dates: start: 20130313, end: 20130313
  9. HEPARIN [Concomitant]
     Active Substance: HEPARIN SODIUM
     Dates: start: 20130313, end: 20130313

REACTIONS (1)
  - Paralysis [Recovering/Resolving]

NARRATIVE: CASE EVENT DATE: 20140313
